FAERS Safety Report 25199590 (Version 2)
Quarter: 2025Q2

REPORT INFORMATION
  Report Type: Other
  Country: JP (occurrence: JP)
  Receive Date: 20250415
  Receipt Date: 20250429
  Transmission Date: 20250716
  Serious: Yes (Disabling, Other)
  Sender: ESTEVE
  Company Number: JP-Esteve Pharmaceuticals SA-2174944

PATIENT
  Age: 80 Year
  Sex: Male

DRUGS (1)
  1. METOPIRONE [Suspect]
     Active Substance: METYRAPONE
     Indication: Cushing^s syndrome

REACTIONS (2)
  - Adrenal insufficiency [Recovering/Resolving]
  - Off label use [Unknown]
